FAERS Safety Report 25651513 (Version 1)
Quarter: 2025Q3

REPORT INFORMATION
  Report Type: Spontaneous
  Country: EU (occurrence: EU)
  Receive Date: 20250806
  Receipt Date: 20250806
  Transmission Date: 20251021
  Serious: Yes (Other)
  Sender: MYLAN
  Company Number: None

PATIENT
  Age: 43 Year
  Sex: Female

DRUGS (7)
  1. CLOZAPINE [Interacting]
     Active Substance: CLOZAPINE
     Indication: Psychotic disorder
  2. LEVOMEPROMAZINE [Interacting]
     Active Substance: LEVOMEPROMAZINE
     Indication: Psychotic disorder
  3. FLUPENTIXOL [Interacting]
     Active Substance: FLUPENTIXOL
     Indication: Psychotic disorder
  4. TERALITHE [Interacting]
     Active Substance: LITHIUM CARBONATE
     Indication: Psychotic disorder
     Dosage: 800 MILLIGRAM, QD (EXTENDED-RELEASE SCORED TABLET)
  5. DIAZEPAM [Interacting]
     Active Substance: DIAZEPAM
     Indication: Anxiety
  6. VALPROATE SODIUM [Interacting]
     Active Substance: VALPROATE SODIUM
     Indication: Product used for unknown indication
  7. TROPATEPINE HYDROCHLORIDE [Concomitant]
     Active Substance: TROPATEPINE HYDROCHLORIDE

REACTIONS (4)
  - Anxiety [Not Recovered/Not Resolved]
  - Sedation [Not Recovered/Not Resolved]
  - Drug interaction [Not Recovered/Not Resolved]
  - Dysphemia [Not Recovered/Not Resolved]
